FAERS Safety Report 24141026 (Version 2)
Quarter: 2025Q1

REPORT INFORMATION
  Report Type: Spontaneous
  Country: CA (occurrence: CA)
  Receive Date: 20240726
  Receipt Date: 20250214
  Transmission Date: 20250408
  Serious: Yes (Hospitalization, Other)
  Sender: PFIZER
  Company Number: CA-PFIZER INC-202300455953

PATIENT
  Age: 74 Year
  Sex: Female

DRUGS (10)
  1. RUXIENCE [Suspect]
     Active Substance: RITUXIMAB-PVVR
     Indication: Rheumatoid arthritis
     Route: 042
     Dates: start: 20231215
  2. RUXIENCE [Suspect]
     Active Substance: RITUXIMAB-PVVR
     Route: 042
     Dates: start: 20231220
  3. RUXIENCE [Suspect]
     Active Substance: RITUXIMAB-PVVR
     Route: 042
     Dates: start: 20240212
  4. BENADRYL [Concomitant]
     Active Substance: DIPHENHYDRAMINE HYDROCHLORIDE
     Indication: Premedication
     Dates: start: 20240212
  5. CRESTOR [Concomitant]
     Active Substance: ROSUVASTATIN CALCIUM
  6. METHOTREXATE SODIUM [Concomitant]
     Active Substance: METHOTREXATE SODIUM
  7. PLAVIX [Concomitant]
     Active Substance: CLOPIDOGREL BISULFATE
  8. PREDNISONE [Concomitant]
     Active Substance: PREDNISONE
  9. SOLU-MEDROL [Concomitant]
     Active Substance: METHYLPREDNISOLONE SODIUM SUCCINATE
     Indication: Premedication
     Dates: start: 20240212
  10. TYLENOL [Concomitant]
     Active Substance: ACETAMINOPHEN
     Indication: Premedication
     Dates: start: 20240212

REACTIONS (16)
  - COVID-19 [Not Recovered/Not Resolved]
  - Pneumonia [Recovered/Resolved]
  - Candida infection [Not Recovered/Not Resolved]
  - Immunodeficiency [Unknown]
  - Ageusia [Unknown]
  - Pyrexia [Unknown]
  - Heart rate decreased [Recovered/Resolved]
  - Blood pressure systolic increased [Unknown]
  - Headache [Unknown]
  - Eye irritation [Recovering/Resolving]
  - Malaise [Unknown]
  - Asthenia [Not Recovered/Not Resolved]
  - Urinary tract infection [Not Recovered/Not Resolved]
  - Blood potassium decreased [Unknown]
  - White blood cell count increased [Unknown]
  - Off label use [Unknown]

NARRATIVE: CASE EVENT DATE: 20231220
